FAERS Safety Report 16480567 (Version 1)
Quarter: 2019Q2

REPORT INFORMATION
  Report Type: Spontaneous
  Country: JP (occurrence: JP)
  Receive Date: 20190626
  Receipt Date: 20190626
  Transmission Date: 20190711
  Serious: Yes (Other)
  Sender: FDA-Public Use
  Company Number: JP-PFIZER INC-2019263298

PATIENT

DRUGS (2)
  1. MYSER [DIFLUPREDNATE] [Concomitant]
     Route: 061
  2. SOLU-CORTEF [Suspect]
     Active Substance: HYDROCORTISONE SODIUM SUCCINATE
     Route: 041

REACTIONS (5)
  - Dyspnoea [Unknown]
  - Dermatitis [Recovered/Resolved]
  - Pruritus [Unknown]
  - Condition aggravated [Recovered/Resolved]
  - Bradycardia [Recovered/Resolved]
